FAERS Safety Report 6647974-6 (Version None)
Quarter: 2010Q1

REPORT INFORMATION
  Report Type: 
  Country: None (occurrence: None)
  Receive Date: 20100324
  Receipt Date: 20100315
  Transmission Date: 20100710
  Serious: No
  Sender: FDA-Public Use
  Company Number: JP-ASTRAZENECA-2010SE08855

PATIENT
  Age: 16173 Day
  Sex: Male
  Weight: 66 kg

DRUGS (8)
  1. DIPRIVAN [Suspect]
     Indication: SEDATION
     Dosage: 4-5 MG/KG/HR, 31680 MG
     Route: 041
     Dates: start: 20060914, end: 20060917
  2. LEPETAN [Concomitant]
     Dosage: NUMBER OF SEPARATE DOSES UNKNOWN
     Route: 065
     Dates: start: 20060914, end: 20060915
  3. PERDIPINE [Concomitant]
     Dosage: NUMBER OF SEPARATE DOSES UNKNOWN
     Route: 042
     Dates: start: 20060914, end: 20060916
  4. RINDERON [Concomitant]
     Dosage: 4-8G/DAY
     Route: 041
     Dates: start: 20060914, end: 20060917
  5. RADICUT [Concomitant]
     Dosage: NUMBER OF SEPARATE DOSES UNKNOWN
     Route: 041
     Dates: start: 20060916, end: 20060916
  6. PRECEDEX [Concomitant]
     Dosage: NUMBER OF SEPARATE DOSES UNKNOWN
     Route: 042
     Dates: start: 20060917, end: 20060917
  7. CEFAMEZIN ALPHA [Concomitant]
     Dosage: NUMBER OF SEPARATE DOSES UNKNOWN
     Route: 041
     Dates: start: 20060914, end: 20090917
  8. FAMOTIDINE [Concomitant]
     Dosage: NUMBER OF SEPARATE DOSES UNKNOWN
     Route: 065
     Dates: start: 20060914

REACTIONS (1)
  - GAZE PALSY [None]
